FAERS Safety Report 14656161 (Version 2)
Quarter: 2018Q2

REPORT INFORMATION
  Report Type: Spontaneous
  Country: US (occurrence: US)
  Receive Date: 20180319
  Receipt Date: 20180619
  Transmission Date: 20180711
  Serious: Yes (Death, Hospitalization)
  Sender: FDA-Public Use
  Company Number: US-JNJFOC-20180321902

PATIENT
  Age: 87 Year
  Sex: Male

DRUGS (1)
  1. XARELTO [Suspect]
     Active Substance: RIVAROXABAN
     Indication: DEEP VEIN THROMBOSIS
     Route: 048
     Dates: start: 20160217, end: 20160321

REACTIONS (4)
  - Gastrointestinal haemorrhage [Unknown]
  - Metastatic neoplasm [Fatal]
  - Pneumonia [Fatal]
  - Sepsis [Fatal]

NARRATIVE: CASE EVENT DATE: 201603
